FAERS Safety Report 18520909 (Version 1)
Quarter: 2020Q4

REPORT INFORMATION
  Report Type: Spontaneous
  Country: US (occurrence: US)
  Receive Date: 20201119
  Receipt Date: 20201119
  Transmission Date: 20210114
  Serious: No
  Sender: FDA-Public Use
  Company Number: US-HIKMA PHARMACEUTICALS USA INC.-US-H14001-20-00093

PATIENT
  Sex: Male

DRUGS (1)
  1. IPRATROPIUM [Suspect]
     Active Substance: IPRATROPIUM
     Indication: RHINORRHOEA
     Dosage: WEEK OF 30DEC2019
     Dates: start: 20191230

REACTIONS (1)
  - Product dose omission issue [Not Recovered/Not Resolved]
